FAERS Safety Report 9476162 (Version 2)
Quarter: 2013Q3

REPORT INFORMATION
  Report Type: Spontaneous
  Country: US (occurrence: US)
  Receive Date: 20130826
  Receipt Date: 20130910
  Transmission Date: 20140515
  Serious: No
  Sender: FDA-Public Use
  Company Number: US-MERCK-1308USA011142

PATIENT
  Age: 39 Year
  Sex: Female

DRUGS (4)
  1. SAPHRIS [Suspect]
     Dosage: BLACK CHERRY FLAVORED SAPHRIS
     Route: 060
  2. SAPHRIS [Suspect]
     Dosage: 10 MG 1 STANDARD PACKAGE BOTTLE OF 30
     Route: 060
     Dates: start: 20130821, end: 20130821
  3. SAPHRIS [Suspect]
     Dosage: UNK
     Route: 060
  4. SAPHRIS [Suspect]
     Dosage: UNK
     Route: 060
     Dates: start: 20130822

REACTIONS (2)
  - Hypersensitivity [Unknown]
  - Urticaria [Recovered/Resolved]
